FAERS Safety Report 14646161 (Version 2)
Quarter: 2018Q1

REPORT INFORMATION
  Report Type: Spontaneous
  Country: DE (occurrence: DE)
  Receive Date: 20180316
  Receipt Date: 20180329
  Transmission Date: 20180509
  Serious: Yes (Other)
  Sender: FDA-Public Use
  Company Number: DE-AMGEN-DEUSP2018033102

PATIENT
  Age: 64 Year
  Sex: Female
  Weight: 86 kg

DRUGS (10)
  1. ASPIRIN. [Concomitant]
     Active Substance: ASPIRIN
     Dosage: 100 UNK, UNK
  2. TORASEMID [Concomitant]
     Active Substance: TORSEMIDE
     Dosage: 10 UNK, UNK
  3. INSULIN [Concomitant]
     Active Substance: INSULIN NOS
  4. REPATHA [Suspect]
     Active Substance: EVOLOCUMAB
     Indication: HYPERCHOLESTEROLAEMIA
     Dosage: 140 MG, Q2WK
     Route: 065
     Dates: start: 20180102, end: 20180121
  5. CANDESARTAN. [Concomitant]
     Active Substance: CANDESARTAN
     Dosage: 16 MG, UNK
  6. SPIRONOLACTON [Concomitant]
     Active Substance: SPIRONOLACTONE
     Dosage: 25 UNK, UNK
  7. NITROSPRAY [Concomitant]
     Active Substance: NITROGLYCERIN
     Dosage: UNK UNK, AS NECESSARY
  8. BISOHEXAL [Concomitant]
     Active Substance: BISOPROLOL FUMARATE
     Dosage: 5 UNK, UNK
  9. EZETROL [Concomitant]
     Active Substance: EZETIMIBE
  10. L-THYROX [Concomitant]
     Active Substance: LEVOTHYROXINE SODIUM
     Dosage: 112,5

REACTIONS (13)
  - Sensory disturbance [Recovered/Resolved]
  - Lacrimation increased [Recovered/Resolved]
  - Palpitations [Recovered/Resolved]
  - Headache [Recovered/Resolved]
  - Diarrhoea [Recovered/Resolved]
  - Paraesthesia [Recovered/Resolved]
  - Malaise [Recovered/Resolved]
  - Rhinorrhoea [Recovered/Resolved]
  - Discomfort [Recovered/Resolved]
  - Sensory level abnormal [Recovered/Resolved]
  - Burning sensation [Recovered/Resolved]
  - Nausea [Recovered/Resolved]
  - Blood pressure increased [Recovered/Resolved]

NARRATIVE: CASE EVENT DATE: 2018
